FAERS Safety Report 12718824 (Version 1)
Quarter: 2016Q3

REPORT INFORMATION
  Report Type: Spontaneous
  Country: US (occurrence: US)
  Receive Date: 20160906
  Receipt Date: 20160906
  Transmission Date: 20161109
  Serious: No
  Sender: FDA-Public Use
  Company Number: US-ASTRAZENECA-2016SE90309

PATIENT
  Age: 50 Year
  Sex: Female
  Weight: 108.9 kg

DRUGS (2)
  1. NEXIUM [Suspect]
     Active Substance: ESOMEPRAZOLE MAGNESIUM
     Indication: GASTROOESOPHAGEAL REFLUX DISEASE
     Dosage: UNKNOWN,DAILY
     Route: 048
     Dates: start: 2014, end: 2015
  2. NEXIUM [Suspect]
     Active Substance: ESOMEPRAZOLE MAGNESIUM
     Indication: GASTROOESOPHAGEAL REFLUX DISEASE
     Dosage: ESOMEPRAZOLE MAGNESIUM, 40 MG DAILY
     Route: 048
     Dates: start: 2015

REACTIONS (5)
  - Pigmentation disorder [Unknown]
  - Alopecia [Unknown]
  - Skin odour abnormal [Unknown]
  - Arthralgia [Unknown]
  - Amnesia [Unknown]

NARRATIVE: CASE EVENT DATE: 2014
